FAERS Safety Report 24253180 (Version 2)
Quarter: 2024Q3

REPORT INFORMATION
  Report Type: Spontaneous
  Country: FR (occurrence: FR)
  Receive Date: 20240827
  Receipt Date: 20240905
  Transmission Date: 20241017
  Serious: Yes (Hospitalization)
  Sender: JIANGSU HENGRUI MEDICINE
  Company Number: FR-Jiangsu Hengrui Medicine Co., Ltd.-2160895

PATIENT
  Age: 65 Year
  Sex: Male
  Weight: 102.4 kg

DRUGS (4)
  1. THIOTEPA [Suspect]
     Active Substance: THIOTEPA
     Indication: Bone marrow conditioning regimen
     Route: 042
     Dates: start: 20240604, end: 20240604
  2. FLUDARABINE PHOSPHATE [Suspect]
     Active Substance: FLUDARABINE PHOSPHATE
     Route: 042
     Dates: start: 20240605, end: 20240609
  3. CYCLOSPORINE [Suspect]
     Active Substance: CYCLOSPORINE
     Route: 042
     Dates: start: 20240610
  4. TREOSULFAN [Suspect]
     Active Substance: TREOSULFAN
     Route: 042
     Dates: start: 20240607, end: 20240609

REACTIONS (2)
  - Hyperbilirubinaemia [Recovering/Resolving]
  - Acute kidney injury [Not Recovered/Not Resolved]

NARRATIVE: CASE EVENT DATE: 20240617
